FAERS Safety Report 5510765-3 (Version None)
Quarter: 2007Q4

REPORT INFORMATION
  Report Type: 
  Country: None (occurrence: None)
  Receive Date: 20071108
  Receipt Date: 20071106
  Transmission Date: 20080405
  Serious: Yes (Other)
  Sender: FDA-Public Use
  Company Number: B0493387A

PATIENT
  Age: 35 Year
  Sex: Female

DRUGS (5)
  1. SULTANOL [Suspect]
     Indication: ASTHMA
     Route: 055
     Dates: start: 20070913
  2. FLUTIDE [Concomitant]
     Route: 055
  3. ONON [Concomitant]
     Route: 048
  4. HOKUNALIN [Concomitant]
     Route: 062
  5. THEO-DUR [Concomitant]
     Route: 048

REACTIONS (1)
  - HYPERTHYROIDISM [None]
